FAERS Safety Report 22194049 (Version 1)
Quarter: 2023Q2

REPORT INFORMATION
  Report Type: Spontaneous
  Country: FR (occurrence: FR)
  Receive Date: 20230411
  Receipt Date: 20230411
  Transmission Date: 20230722
  Serious: Yes (Other)
  Sender: FDA-Public Use
  Company Number: FR-ASPEN-GLO2023FR001228

PATIENT
  Age: 72 Year
  Sex: Female

DRUGS (10)
  1. LIDOCAINE [Suspect]
     Active Substance: LIDOCAINE
     Indication: Anaesthesia
     Dosage: UNK
     Route: 065
     Dates: start: 20230213
  2. ACETAMINOPHEN [Suspect]
     Active Substance: ACETAMINOPHEN
     Indication: Analgesic therapy
     Dosage: UNK
     Route: 065
     Dates: start: 20230213
  3. ACUPAN [Suspect]
     Active Substance: NEFOPAM HYDROCHLORIDE
     Indication: Analgesic therapy
     Dosage: UNK
     Route: 065
     Dates: start: 20230213
  4. ATARAX [Suspect]
     Active Substance: HYDROXYZINE HYDROCHLORIDE
     Indication: Anaesthesia
     Dosage: UNK
     Route: 065
     Dates: start: 20230213
  5. CEFAZOLIN SODIUM [Suspect]
     Active Substance: CEFAZOLIN SODIUM
     Indication: Antibiotic prophylaxis
     Dosage: UNK
     Route: 065
     Dates: start: 20230213
  6. DIPRIVAN [Suspect]
     Active Substance: PROPOFOL
     Indication: Anaesthesia
     Dosage: UNK
     Route: 065
     Dates: start: 20230213
  7. DROPERIDOL [Suspect]
     Active Substance: DROPERIDOL
     Indication: Anaesthesia
     Dosage: UNK
     Route: 065
     Dates: start: 20230213
  8. KETAMINE [Suspect]
     Active Substance: KETAMINE
     Indication: Anaesthesia
     Dosage: UNK
     Route: 065
     Dates: start: 20230213
  9. SUFENTANIL [Suspect]
     Active Substance: SUFENTANIL
     Indication: Anaesthesia
     Dosage: UNK
     Route: 065
     Dates: start: 20230213
  10. XYLOCAINE [Suspect]
     Active Substance: LIDOCAINE HYDROCHLORIDE
     Indication: Ureteral catheterisation
     Dosage: UNK
     Route: 065
     Dates: start: 20230213

REACTIONS (2)
  - Anaphylactic shock [Unknown]
  - Hypersensitivity [Unknown]

NARRATIVE: CASE EVENT DATE: 20230213
